FAERS Safety Report 5418399-6 (Version None)
Quarter: 2007Q3

REPORT INFORMATION
  Report Type: 
  Country: None (occurrence: None)
  Receive Date: 20070817
  Receipt Date: 20070809
  Transmission Date: 20080115
  Serious: Yes (Other)
  Sender: FDA-Public Use
  Company Number: CA-GENENTECH-246016

PATIENT
  Sex: Female

DRUGS (2)
  1. OMALIZUMAB [Suspect]
     Indication: ASTHMA
     Dosage: UNK, UNK
     Route: 058
     Dates: start: 20060227
  2. AVELOX [Suspect]
     Indication: DRUG USE FOR UNKNOWN INDICATION

REACTIONS (2)
  - ANAPHYLACTIC SHOCK [None]
  - DYSPNOEA [None]
